FAERS Safety Report 9028560 (Version 1)
Quarter: 2013Q1

REPORT INFORMATION
  Report Type: Spontaneous
  Country: CA (occurrence: CA)
  Receive Date: 20130124
  Receipt Date: 20130124
  Transmission Date: 20140127
  Serious: Yes (Other)
  Sender: FDA-Public Use
  Company Number: CA-GLAXOSMITHKLINE-A1003756A

PATIENT
  Age: 44 Year
  Sex: Female

DRUGS (6)
  1. TYKERB [Suspect]
     Indication: BREAST CANCER METASTATIC
     Dosage: 1250MG PER DAY
     Route: 048
     Dates: start: 20120428, end: 20130107
  2. XELODA [Suspect]
     Dosage: 1800MG TWICE PER DAY
     Route: 065
     Dates: end: 20130107
  3. VASOTEC [Concomitant]
  4. LOPRESSOR [Concomitant]
  5. SERAX [Concomitant]
  6. VENLAFAXINE [Concomitant]

REACTIONS (3)
  - Diarrhoea [Recovered/Resolved]
  - Malignant neoplasm progression [Not Recovered/Not Resolved]
  - Hepatic lesion [Not Recovered/Not Resolved]
